FAERS Safety Report 17992042 (Version 2)
Quarter: 2020Q3

REPORT INFORMATION
  Report Type: Report from Study
  Country: GB (occurrence: GB)
  Receive Date: 20200708
  Receipt Date: 20200821
  Transmission Date: 20201103
  Serious: Yes (Other)
  Sender: FDA-Public Use
  Company Number: GB-SAMSUNG BIOEPIS-SB-2020-01228

PATIENT
  Age: 58 Year
  Sex: Female

DRUGS (2)
  1. METHOTREXATE. [Concomitant]
     Active Substance: METHOTREXATE
     Indication: PRODUCT USED FOR UNKNOWN INDICATION
     Dosage: UNKNOWN
     Route: 065
  2. BENEPALI [Suspect]
     Active Substance: ETANERCEPT
     Indication: RHEUMATOID ARTHRITIS
     Route: 058

REACTIONS (23)
  - Feeling hot [Recovered/Resolved]
  - Pruritus [Not Recovered/Not Resolved]
  - Decreased appetite [Unknown]
  - Musculoskeletal stiffness [Unknown]
  - Fatigue [Unknown]
  - Peritonitis [Unknown]
  - Poor quality sleep [Unknown]
  - Nephrolithiasis [Unknown]
  - Dizziness [Recovered/Resolved]
  - Pain [Unknown]
  - Gingival pain [Unknown]
  - Tooth abscess [Unknown]
  - Food allergy [Not Recovered/Not Resolved]
  - Oral pain [Unknown]
  - Renal pain [Unknown]
  - Toothache [Unknown]
  - Drug ineffective [Unknown]
  - Depressed mood [Unknown]
  - Flank pain [Unknown]
  - Urine abnormality [Unknown]
  - Urinary tract infection [Unknown]
  - Appetite disorder [Unknown]
  - Candida infection [Unknown]
